FAERS Safety Report 18544789 (Version 1)
Quarter: 2020Q4

REPORT INFORMATION
  Report Type: Spontaneous
  Country: IQ (occurrence: IQ)
  Receive Date: 20201125
  Receipt Date: 20201125
  Transmission Date: 20210114
  Serious: Yes (Other)
  Sender: FDA-Public Use
  Company Number: IQ-009507513-2011IRQ013817

PATIENT
  Age: 54 Year
  Sex: Female

DRUGS (1)
  1. KEYTRUDA [Suspect]
     Active Substance: PEMBROLIZUMAB
     Dosage: UNK, CYCLICAL

REACTIONS (5)
  - Pain [Unknown]
  - Pyrexia [Unknown]
  - Malignant neoplasm progression [Unknown]
  - Tumour exudation [Unknown]
  - Depressed level of consciousness [Unknown]
